FAERS Safety Report 4958276-8 (Version None)
Quarter: 2006Q1

REPORT INFORMATION
  Report Type: 
  Country: None (occurrence: None)
  Receive Date: 20060324
  Receipt Date: 20060316
  Transmission Date: 20060701
  Serious: Yes (Hospitalization)
  Sender: FDA-Public Use
  Company Number: MEDI-0004240

PATIENT
  Age: 5 Month
  Sex: Female

DRUGS (6)
  1. SYNAGIS [Suspect]
     Indication: ANTIVIRAL PROPHYLAXIS
     Dosage: 62 MG, 1 IN 30 D, INTRAMUSCULAR
     Route: 033
     Dates: start: 20051118, end: 20051118
  2. LANOXIN [Concomitant]
  3. LASIX [Concomitant]
  4. ZESTRIL [Concomitant]
  5. ATROVENT [Concomitant]
  6. VENTOLIN [Concomitant]

REACTIONS (4)
  - BRONCHIOLITIS [None]
  - CARDIOMEGALY [None]
  - GASTROENTERITIS VIRAL [None]
  - PULMONARY CONGESTION [None]
